FAERS Safety Report 8589273-1 (Version None)
Quarter: 2012Q3

REPORT INFORMATION
  Report Type: 
  Country: None (occurrence: None)
  Receive Date: 20120731
  Receipt Date: 20120531
  Transmission Date: 20120928
  Serious: Yes (Life-Threatening)
  Sender: FDA-Public Use
  Company Number: BR-20120028

PATIENT
  Age: 65 Year
  Sex: Female

DRUGS (4)
  1. HEXABRIX [Suspect]
     Indication: PRODUCT USED FOR UNKNOWN INDICATION
     Dosage: 1 IN 1 TOTAL
  2. HEPARIN [Concomitant]
  3. XYLOCAINE (LIDOCAINE) (LIDOCAINE) [Concomitant]
  4. MONOCORDIL (ISOSORBIDE MONONITRATE) (ISOSORBIDE MONITRATE) [Concomitant]

REACTIONS (4)
  - TREMOR [None]
  - ERYTHEMA [None]
  - HYPERTENSION [None]
  - APPARENT LIFE THREATENING EVENT [None]
